FAERS Safety Report 5065683-4 (Version None)
Quarter: 2006Q3

REPORT INFORMATION
  Report Type: 
  Country: None (occurrence: None)
  Receive Date: 20060714
  Receipt Date: 20060521
  Transmission Date: 20061208
  Serious: No
  Sender: FDA-Public Use
  Company Number: 2006SP002140

PATIENT
  Age: 52 Year
  Sex: Female
  Weight: 83.9154 kg

DRUGS (6)
  1. LUNESTA [Suspect]
     Indication: INSOMNIA
     Dosage: 3 MG;ORAL
     Route: 048
  2. WARFARIN SODIUM [Concomitant]
  3. ANDROID [Concomitant]
  4. LEVOTHYROXINE SODIUM [Concomitant]
  5. VIVELLE [Concomitant]
  6. MULTIVITAMIN [Concomitant]

REACTIONS (1)
  - DYSGEUSIA [None]
